FAERS Safety Report 10330645 (Version 1)
Quarter: 2014Q3

REPORT INFORMATION
  Report Type: Spontaneous
  Country: US (occurrence: None)
  Receive Date: 20140718
  Receipt Date: 20140718
  Transmission Date: 20150326
  Serious: Yes (Disabling)
  Sender: FDA-Public Use
  Company Number: None

PATIENT
  Age: 58 Year
  Sex: Female
  Weight: 107 kg

DRUGS (17)
  1. BABY ASPIRIN [Concomitant]
     Active Substance: ASPIRIN
  2. GRAPE SEED [Concomitant]
  3. FISH OIL [Concomitant]
     Active Substance: FISH OIL
  4. OMEGA 3 [Concomitant]
     Active Substance: OMEGA-3 FATTY ACIDS
  5. LEVOFLOXACIN [Suspect]
     Active Substance: LEVOFLOXACIN
     Indication: BACTERIAL INFECTION
     Dosage: 7 PILLS, BY MOUTH
     Dates: start: 20140625, end: 20140701
  6. DIFLUCAN [Concomitant]
     Active Substance: FLUCONAZOLE
  7. TUMERIC [Concomitant]
  8. PROBIOTICS [Concomitant]
     Active Substance: PROBIOTICS NOS
  9. LUTEIN [Concomitant]
     Active Substance: LUTEIN
  10. MILK THISTLE [Concomitant]
     Active Substance: MILK THISTLE
  11. CRAMBERY [Concomitant]
  12. LEVOFLOXACIN [Suspect]
     Active Substance: LEVOFLOXACIN
     Indication: VAGINAL INFECTION
     Dosage: 7 PILLS, BY MOUTH
     Dates: start: 20140625, end: 20140701
  13. SUPPLEMENTS [Concomitant]
     Active Substance: UNSPECIFIED INGREDIENT
  14. VITAMINS [Concomitant]
     Active Substance: VITAMINS
  15. COQ10 [Concomitant]
     Active Substance: UBIDECARENONE
  16. SELENIUM [Concomitant]
     Active Substance: SELENIUM
  17. VITAMIN D3 [Concomitant]
     Active Substance: CHOLECALCIFEROL

REACTIONS (3)
  - Pain in extremity [None]
  - Myalgia [None]
  - Muscle twitching [None]

NARRATIVE: CASE EVENT DATE: 20140625
